FAERS Safety Report 6984010-6 (Version None)
Quarter: 2010Q3

REPORT INFORMATION
  Report Type: 
  Country: None (occurrence: None)
  Receive Date: 20100915
  Receipt Date: 20090625
  Transmission Date: 20110219
  Serious: No
  Sender: FDA-Public Use
  Company Number: US-WYE-H09329809

PATIENT
  Age: 35 Year
  Sex: Female
  Weight: 61.29 kg

DRUGS (3)
  1. ADVIL LIQUI-GELS [Suspect]
     Indication: DYSMENORRHOEA
     Dosage: 1 LIQUI GEL EVERY 4 HOURS
     Route: 048
  2. ADVIL LIQUI-GELS [Suspect]
     Dosage: TOOK ONE LIQUI-GEL AT 4 AM AND THEN TOOK ANOTHER AT 9 AM
     Route: 048
     Dates: start: 20090506, end: 20090506
  3. MULTI-VITAMINS [Concomitant]

REACTIONS (6)
  - DYSARTHRIA [None]
  - FATIGUE [None]
  - HYPERHIDROSIS [None]
  - PRODUCT QUALITY ISSUE [None]
  - SOMNOLENCE [None]
  - TREMOR [None]
